FAERS Safety Report 8212767-5 (Version None)
Quarter: 2012Q1

REPORT INFORMATION
  Report Type: 
  Country: None (occurrence: None)
  Receive Date: 20120315
  Receipt Date: 20120313
  Transmission Date: 20120608
  Serious: Yes (Hospitalization)
  Sender: FDA-Public Use
  Company Number: US-ABBOTT-12P-163-0914711-00

PATIENT
  Sex: Male
  Weight: 95.34 kg

DRUGS (3)
  1. CLARITHROMYCIN [Suspect]
     Indication: HELICOBACTER INFECTION
     Route: 048
     Dates: start: 20120201, end: 20120201
  2. RADIATION [Concomitant]
     Indication: LYMPHOMA
  3. UNKNOWN CHEMOTHERAPY [Concomitant]
     Indication: LYMPHOMA

REACTIONS (3)
  - ABDOMINAL PAIN [None]
  - JAUNDICE [None]
  - BLOOD BILIRUBIN INCREASED [None]
